FAERS Safety Report 14900065 (Version 1)
Quarter: 2018Q2

REPORT INFORMATION
  Report Type: Spontaneous
  Country: US (occurrence: US)
  Receive Date: 20180427
  Receipt Date: 20180427
  Transmission Date: 20180711
  Serious: Yes (Other)
  Sender: FDA-Public Use
  Company Number: None

PATIENT
  Age: 58 Year
  Sex: Female
  Weight: 56.25 kg

DRUGS (7)
  1. ESTRADIOL. [Concomitant]
     Active Substance: ESTRADIOL
  2. CALCIUM [Concomitant]
     Active Substance: CALCIUM
  3. MESALAMINE 1.2 GM [Suspect]
     Active Substance: MESALAMINE
     Indication: COLITIS ULCERATIVE
     Dosage: ?          QUANTITY:3 TABLET(S);?
     Route: 048
     Dates: start: 20180415, end: 20180426
  4. MULTIVITAMINS [Concomitant]
     Active Substance: VITAMINS
  5. DHEA [Concomitant]
     Active Substance: PRASTERONE
  6. ADVAIR HFA [Concomitant]
     Active Substance: FLUTICASONE PROPIONATE\SALMETEROL XINAFOATE
  7. PREGNENOLONE [Concomitant]
     Active Substance: PREGNENOLONE

REACTIONS (6)
  - Symptom recurrence [None]
  - Product coating issue [None]
  - Diarrhoea [None]
  - Muscle spasms [None]
  - Abdominal distension [None]
  - Product substitution issue [None]

NARRATIVE: CASE EVENT DATE: 20180424
